FAERS Safety Report 16642160 (Version 1)
Quarter: 2019Q3

REPORT INFORMATION
  Report Type: Report from Study
  Country: AT (occurrence: AT)
  Receive Date: 20190729
  Receipt Date: 20190729
  Transmission Date: 20191004
  Serious: Yes (Hospitalization, Other)
  Sender: FDA-Public Use
  Company Number: AT-ASTELLAS-2019US023969

PATIENT
  Age: 66 Year
  Sex: Male
  Weight: 103 kg

DRUGS (6)
  1. TACROLIMUS. [Suspect]
     Active Substance: TACROLIMUS
     Indication: PROPHYLAXIS AGAINST TRANSPLANT REJECTION
     Route: 048
     Dates: start: 20160312
  2. PREDNISOLONE. [Concomitant]
     Active Substance: PREDNISOLONE
     Indication: IMMUNOSUPPRESSANT DRUG THERAPY
     Dosage: 5 UNKNOWN UNITS, ONCE DAILY
     Route: 065
     Dates: start: 20161024, end: 20190520
  3. PREDNISOLONE. [Concomitant]
     Active Substance: PREDNISOLONE
     Dosage: 25 UNKNOWN UNITS, ONCE DAILY
     Route: 065
     Dates: start: 20190521
  4. TACROLIMUS. [Suspect]
     Active Substance: TACROLIMUS
     Dosage: UNK, UNKNOWN FREQ.
     Route: 048
  5. MYCOPHENOLATE MOFETIL. [Concomitant]
     Active Substance: MYCOPHENOLATE MOFETIL
     Indication: IMMUNOSUPPRESSANT DRUG THERAPY
     Dosage: 2000 UNKNOWN UNITS, ONCE DAILY
     Route: 065
     Dates: start: 20160306, end: 20190520
  6. MYCOPHENOLATE MOFETIL. [Concomitant]
     Active Substance: MYCOPHENOLATE MOFETIL
     Dosage: 1500 UNKNOWN UNITS, ONCE DAILY
     Route: 065
     Dates: start: 20190521

REACTIONS (3)
  - Non-small cell lung cancer [Not Recovered/Not Resolved]
  - Cytomegalovirus test positive [Recovered/Resolved]
  - Inflammatory marker increased [Not Recovered/Not Resolved]

NARRATIVE: CASE EVENT DATE: 20190521
